FAERS Safety Report 21272569 (Version 1)
Quarter: 2022Q3

REPORT INFORMATION
  Report Type: Report from Study
  Country: US (occurrence: US)
  Receive Date: 20220830
  Receipt Date: 20220830
  Transmission Date: 20221027
  Serious: Yes (Other)
  Sender: FDA-Public Use
  Company Number: US-GILEAD-2021-0529293

PATIENT
  Sex: Female

DRUGS (2)
  1. SACITUZUMAB GOVITECAN [Suspect]
     Active Substance: SACITUZUMAB GOVITECAN
     Indication: Breast cancer female
     Dosage: 180 MG ON DAYS 1 AND 8
     Route: 042
     Dates: start: 20210312, end: 20210312
  2. SACITUZUMAB GOVITECAN [Suspect]
     Active Substance: SACITUZUMAB GOVITECAN
     Dosage: 700 MG, OVER 1 HOUR ON DAYS 1 AND 8 EVERY 21 DAYS
     Route: 042
     Dates: start: 20210218

REACTIONS (1)
  - Disease progression [Unknown]
